FAERS Safety Report 24224391 (Version 2)
Quarter: 2024Q3

REPORT INFORMATION
  Report Type: Spontaneous
  Country: GT (occurrence: GT)
  Receive Date: 20240819
  Receipt Date: 20240827
  Transmission Date: 20241017
  Serious: Yes (Death)
  Sender: BIOMARIN
  Company Number: GT-BIOMARINAP-GT-2024-159908

PATIENT

DRUGS (1)
  1. VIMIZIM [Suspect]
     Active Substance: ELOSULFASE ALFA
     Indication: Mucopolysaccharidosis IV
     Dosage: 75 MILLIGRAM, QW
     Route: 042

REACTIONS (3)
  - Cardio-respiratory arrest [Fatal]
  - Intervertebral disc disorder [Unknown]
  - Neck pain [Unknown]

NARRATIVE: CASE EVENT DATE: 20240811
